FAERS Safety Report 10935235 (Version 4)
Quarter: 2015Q2

REPORT INFORMATION
  Report Type: Spontaneous
  Country: US (occurrence: US)
  Receive Date: 20150320
  Receipt Date: 20150505
  Transmission Date: 20150821
  Serious: Yes (Hospitalization, Other)
  Sender: FDA-Public Use
  Company Number: US-009507513-1110USA00462

PATIENT
  Sex: Female
  Weight: 120 kg

DRUGS (4)
  1. FOSAMAX [Suspect]
     Active Substance: ALENDRONATE SODIUM
     Indication: OSTEOPOROSIS
     Dosage: 70 MG, QW
     Route: 048
     Dates: start: 20020116, end: 20060817
  2. FOSAMAX PLUS D [Suspect]
     Active Substance: ALENDRONATE SODIUM\CHOLECALCIFEROL
     Indication: OSTEOPOROSIS
     Dosage: 1 TAB WEEKLY
     Route: 048
     Dates: start: 20100928, end: 20130326
  3. FOSAMAX [Suspect]
     Active Substance: ALENDRONATE SODIUM
     Dosage: 70 MG, QW
     Route: 048
     Dates: start: 20100928, end: 2014
  4. FOSAMAX PLUS D [Suspect]
     Active Substance: ALENDRONATE SODIUM\CHOLECALCIFEROL
     Indication: OSTEOPOROSIS

REACTIONS (32)
  - Post procedural haematoma [Unknown]
  - Internal fixation of fracture [Unknown]
  - Hyperglycaemia [Unknown]
  - Fracture nonunion [Not Recovered/Not Resolved]
  - Device failure [Unknown]
  - Leukocytosis [Unknown]
  - Radius fracture [Unknown]
  - Femur fracture [Unknown]
  - Fracture nonunion [Unknown]
  - Anaemia [Unknown]
  - Bone graft [Unknown]
  - Fall [Unknown]
  - Fall [Unknown]
  - Drug ineffective [Unknown]
  - Hip arthroplasty [Unknown]
  - Hypokalaemia [Unknown]
  - Oedema [Unknown]
  - Depression [Unknown]
  - Osteoporosis [Unknown]
  - Haemorrhagic anaemia [Unknown]
  - Device breakage [Unknown]
  - Intramedullary rod insertion [Unknown]
  - Wrist fracture [Unknown]
  - Rib fracture [Unknown]
  - Femur fracture [Unknown]
  - Device failure [Unknown]
  - Surgery [Unknown]
  - Haematoma evacuation [Unknown]
  - Arthropathy [Unknown]
  - Anaemia postoperative [Unknown]
  - Osteoarthritis [Unknown]
  - Eye pain [Unknown]

NARRATIVE: CASE EVENT DATE: 2009
